FAERS Safety Report 8972320 (Version 3)
Quarter: 2013Q1

REPORT INFORMATION
  Report Type: Spontaneous
  Country: US (occurrence: US)
  Receive Date: 20121219
  Receipt Date: 20130213
  Transmission Date: 20140127
  Serious: Yes (Other)
  Sender: FDA-Public Use
  Company Number: US-JNJFOC-20121109223

PATIENT
  Sex: 0

DRUGS (2)
  1. ROGAINE FOR MEN EXTRA STRENGTH FOAM UNSCENTED [Suspect]
     Route: 061
  2. ROGAINE FOR MEN EXTRA STRENGTH FOAM UNSCENTED [Suspect]
     Indication: HAIR GROWTH ABNORMAL
     Route: 061
     Dates: start: 200904

REACTIONS (6)
  - Dilatation ventricular [Unknown]
  - Chest discomfort [Unknown]
  - Anxiety [Unknown]
  - Cardiac output increased [Unknown]
  - Palpitations [Unknown]
  - Product label issue [Unknown]
